FAERS Safety Report 5558453-1 (Version None)
Quarter: 2007Q4

REPORT INFORMATION
  Report Type: 
  Country: None (occurrence: None)
  Receive Date: 20071214
  Receipt Date: 20071008
  Transmission Date: 20080405
  Serious: Yes (Hospitalization)
  Sender: FDA-Public Use
  Company Number: US-ABBOTT-07P-163-0378218-00

PATIENT
  Sex: Female
  Weight: 90.346 kg

DRUGS (5)
  1. HUMIRA [Suspect]
     Indication: RHEUMATOID ARTHRITIS
  2. INFLIXIMAB [Suspect]
     Indication: RHEUMATOID ARTHRITIS
  3. ETANERCEPT [Suspect]
     Indication: RHEUMATOID ARTHRITIS
  4. LEFLUNOMIDE [Concomitant]
     Indication: RHEUMATOID ARTHRITIS
  5. OTHER PRESCRIPTION DRUGS [Concomitant]
     Indication: RHEUMATOID ARTHRITIS

REACTIONS (2)
  - MYOCARDIAL INFARCTION [None]
  - PNEUMONIA [None]
